FAERS Safety Report 16850916 (Version 3)
Quarter: 2021Q4

REPORT INFORMATION
  Report Type: Report from Study
  Country: JP (occurrence: JP)
  Receive Date: 20190925
  Receipt Date: 20211012
  Transmission Date: 20220303
  Serious: Yes (Hospitalization)
  Sender: FDA-Public Use
  Company Number: JP-PFIZER INC-2019405006

PATIENT
  Age: 69 Year
  Sex: Male
  Weight: 54.7 kg

DRUGS (10)
  1. VYNDAQEL [Suspect]
     Active Substance: TAFAMIDIS MEGLUMINE
     Indication: Cardiac amyloidosis
     Dosage: 80 MG, 1X/DAY
     Route: 048
     Dates: start: 20190809, end: 20210106
  2. SPIRONOLACTONE [Concomitant]
     Active Substance: SPIRONOLACTONE
     Indication: Cardiac amyloidosis
     Dosage: 50 MG, 1X/DAY
     Route: 048
  3. FEXOFENADINE HYDROCHLORIDE\PSEUDOEPHEDRINE HYDROCHLORIDE [Concomitant]
     Active Substance: FEXOFENADINE HYDROCHLORIDE\PSEUDOEPHEDRINE HYDROCHLORIDE
     Indication: Asthma
     Dosage: 2 TABLETS, 2X/DAY
     Route: 048
     Dates: end: 20200220
  4. DIETARY SUPPLEMENT\PROBIOTICS [Concomitant]
     Active Substance: DIETARY SUPPLEMENT\PROBIOTICS
     Indication: Abdominal distension
     Dosage: 1 G, 3X/DAY
     Route: 048
     Dates: start: 20181004
  5. EDOXABAN TOSYLATE [Concomitant]
     Active Substance: EDOXABAN TOSYLATE
     Indication: Atrial fibrillation
     Dosage: 30 MG, 1X/DAY
     Route: 048
     Dates: start: 20180831
  6. MILLISTAPE [Concomitant]
     Indication: Cardiac failure
     Dosage: 5 MG, 2X/DAY
     Route: 061
     Dates: start: 20180831, end: 20191024
  7. HERBALS [Concomitant]
     Active Substance: HERBALS
     Indication: Hereditary neuropathic amyloidosis
     Dosage: 2.5 MG, 1X/DAY
     Route: 048
     Dates: start: 20180531, end: 20191024
  8. RIVOTRIL [Concomitant]
     Active Substance: CLONAZEPAM
     Indication: Hereditary neuropathic amyloidosis
     Dosage: 0.5 MG, 1X/DAY
     Route: 048
     Dates: start: 20180726, end: 20191024
  9. FUROSEMIDE [Concomitant]
     Active Substance: FUROSEMIDE
     Indication: Cardiac amyloidosis
     Dosage: UNK
  10. SYMBICORT [Concomitant]
     Active Substance: BUDESONIDE\FORMOTEROL FUMARATE DIHYDRATE
     Dosage: UNK
     Route: 055
     Dates: end: 20191018

REACTIONS (1)
  - Hypoglycaemia [Recovering/Resolving]

NARRATIVE: CASE EVENT DATE: 20190917
